FAERS Safety Report 6011248-7 (Version None)
Quarter: 2008Q4

REPORT INFORMATION
  Report Type: 
  Country: None (occurrence: None)
  Receive Date: 20081216
  Receipt Date: 20081203
  Transmission Date: 20090506
  Serious: Yes (Other)
  Sender: FDA-Public Use
  Company Number: 231359K08USA

PATIENT
  Age: 57 Year
  Sex: Female

DRUGS (7)
  1. REBIF [Suspect]
     Indication: MULTIPLE SCLEROSIS
     Dosage: 44 MCG, 3 IN 1 WEEKS, SUBCUTANEOUS
     Route: 058
     Dates: start: 20080908
  2. IBUPROFEN [Concomitant]
  3. ATIVAN [Concomitant]
  4. BACLOFEN [Concomitant]
  5. FLEXERIL [Concomitant]
  6. ZOLOFT [Concomitant]
  7. VICODIN [Concomitant]

REACTIONS (4)
  - ANGLE CLOSURE GLAUCOMA [None]
  - HALO VISION [None]
  - HEADACHE [None]
  - VISUAL IMPAIRMENT [None]
